FAERS Safety Report 5471508-5 (Version None)
Quarter: 2007Q3

REPORT INFORMATION
  Report Type: 
  Country: None (occurrence: None)
  Receive Date: 20070928
  Receipt Date: 20061204
  Transmission Date: 20080115
  Serious: No
  Sender: FDA-Public Use
  Company Number: US-BRISTOL-MYERS SQUIBB COMPANY-13600135

PATIENT
  Age: 37 Year
  Sex: Female
  Weight: 92 kg

DRUGS (4)
  1. DEFINITY [Suspect]
     Indication: STRESS ECHOCARDIOGRAM
     Route: 042
     Dates: start: 20061204
  2. LOESTRIN 1.5/30 [Concomitant]
  3. ZYRTEC [Concomitant]
  4. ALBUTEROL [Concomitant]
     Route: 055

REACTIONS (1)
  - URTICARIA [None]
